FAERS Safety Report 24304711 (Version 2)
Quarter: 2024Q3

REPORT INFORMATION
  Report Type: Spontaneous
  Country: JP (occurrence: JP)
  Receive Date: 20240910
  Receipt Date: 20240918
  Transmission Date: 20241016
  Serious: Yes (Other)
  Sender: JOHNSON AND JOHNSON
  Company Number: JP-JNJFOC-20240923267

PATIENT
  Sex: Male

DRUGS (3)
  1. RISPERDAL [Suspect]
     Active Substance: RISPERIDONE
     Indication: Product used for unknown indication
     Dosage: DOSE UNKNOWN
     Route: 048
  2. RISPERIDONE [Concomitant]
     Active Substance: RISPERIDONE
     Dosage: DOSE UNKNOWN
     Route: 065
  3. CLOZARIL [Concomitant]
     Active Substance: CLOZAPINE
     Dosage: DOSE UNKNOWN
     Route: 048

REACTIONS (3)
  - Intellectual disability [Unknown]
  - Polydipsia [Unknown]
  - Sluggishness [Unknown]
